FAERS Safety Report 6141777-7 (Version None)
Quarter: 2009Q2

REPORT INFORMATION
  Report Type: 
  Country: None (occurrence: None)
  Receive Date: 20090402
  Receipt Date: 20081010
  Transmission Date: 20091009
  Serious: No
  Sender: FDA-Public Use
  Company Number: US-ABBOTT-08P-163-0481178-00

PATIENT
  Sex: Female
  Weight: 74.456 kg

DRUGS (11)
  1. LUPRON DEPOT [Suspect]
     Indication: ENDOMETRIOSIS
     Dates: start: 20080902, end: 20080902
  2. LUPRON DEPOT [Suspect]
     Indication: ENDOMETRIOSIS
     Dates: start: 20081008
  3. TRIPHASAL [Concomitant]
     Indication: CONTRACEPTION
     Route: 048
  4. NAPROSEN [Concomitant]
     Indication: DRUG USE FOR UNKNOWN INDICATION
     Route: 048
  5. OMEPRAZOLE MAGNESIUM [Concomitant]
     Indication: DRUG USE FOR UNKNOWN INDICATION
     Route: 048
  6. MONTELUKAST [Concomitant]
     Indication: ASTHMA
     Route: 048
  7. SERETIDE [Concomitant]
     Indication: ASTHMA
     Route: 055
  8. FLUTICASONE PROPIONATE [Concomitant]
     Indication: ASTHMA
     Route: 055
  9. TRIAMCINOLONE ACETONIDE [Concomitant]
     Indication: ASTHMA
     Route: 045
  10. SALBUTAMOL [Concomitant]
     Indication: ASTHMA
     Route: 055
  11. AGESTIN [Concomitant]
     Indication: ENDOMETRIOSIS
     Route: 048

REACTIONS (4)
  - INJECTION SITE ERYTHEMA [None]
  - INJECTION SITE PAIN [None]
  - INJECTION SITE SWELLING [None]
  - PYREXIA [None]
